FAERS Safety Report 4963697-3 (Version None)
Quarter: 2006Q1

REPORT INFORMATION
  Report Type: 
  Country: None (occurrence: None)
  Receive Date: 20060330
  Receipt Date: 20060320
  Transmission Date: 20060701
  Serious: Yes (Other)
  Sender: FDA-Public Use
  Company Number: 2006015603

PATIENT
  Age: 76 Year
  Sex: Male
  Weight: 70.7611 kg

DRUGS (3)
  1. LIPITOR [Suspect]
     Indication: BLOOD CHOLESTEROL INCREASED
     Dosage: 10 MG (10 MG, 1 IN 1 D), ORAL 3 TO 4 HOURS
     Route: 048
     Dates: end: 20060127
  2. ELAVIL [Concomitant]
  3. TOPROL-XL [Concomitant]

REACTIONS (10)
  - ARTERIAL REPAIR [None]
  - BLOOD CHOLESTEROL INCREASED [None]
  - DEPRESSION [None]
  - DISEASE RECURRENCE [None]
  - DRUG DOSE OMISSION [None]
  - MITRAL VALVE REPAIR [None]
  - MUSCULAR WEAKNESS [None]
  - MUSCULOSKELETAL DISCOMFORT [None]
  - PAIN [None]
  - ROTATOR CUFF REPAIR [None]
